FAERS Safety Report 15885712 (Version 5)
Quarter: 2022Q2

REPORT INFORMATION
  Report Type: Spontaneous
  Country: CA (occurrence: CA)
  Receive Date: 20190129
  Receipt Date: 20220509
  Transmission Date: 20220721
  Serious: Yes (Hospitalization, Other)
  Sender: FDA-Public Use
  Company Number: CA-PURDUE PHARMA-CAN-2019-0009575

PATIENT
  Age: 85 Year
  Sex: Male

DRUGS (85)
  1. DILAUDID [Suspect]
     Active Substance: HYDROMORPHONE HYDROCHLORIDE
     Indication: Intervertebral disc disorder
     Dosage: UNK
     Route: 065
  2. DILAUDID [Suspect]
     Active Substance: HYDROMORPHONE HYDROCHLORIDE
     Dosage: UNK
     Route: 065
  3. CODEINE [Suspect]
     Active Substance: CODEINE
     Indication: Product used for unknown indication
     Dosage: UNK
     Route: 065
  4. CODEINE [Suspect]
     Active Substance: CODEINE
     Dosage: UNK
     Route: 065
  5. PIRFENIDONE [Suspect]
     Active Substance: PIRFENIDONE
     Indication: Idiopathic pulmonary fibrosis
     Dosage: 267 MG, TID
     Route: 048
  6. PIRFENIDONE [Suspect]
     Active Substance: PIRFENIDONE
     Dosage: 534 MG, TID
     Route: 048
  7. PIRFENIDONE [Suspect]
     Active Substance: PIRFENIDONE
     Dosage: 801 MG, TID
     Route: 048
  8. PIRFENIDONE [Suspect]
     Active Substance: PIRFENIDONE
     Dosage: 801 MG, TID
     Route: 048
  9. PIRFENIDONE [Suspect]
     Active Substance: PIRFENIDONE
     Dosage: 801 MG, TID
     Route: 048
  10. PIRFENIDONE [Suspect]
     Active Substance: PIRFENIDONE
     Dosage: 534 MG, TID
     Route: 048
  11. PIRFENIDONE [Suspect]
     Active Substance: PIRFENIDONE
     Dosage: 534 MG, TID
     Route: 048
  12. PIRFENIDONE [Suspect]
     Active Substance: PIRFENIDONE
     Dosage: UNK
     Route: 048
  13. PIRFENIDONE [Suspect]
     Active Substance: PIRFENIDONE
     Dosage: 801 MG, TID
     Route: 048
  14. PIRFENIDONE [Suspect]
     Active Substance: PIRFENIDONE
     Dosage: UNK
     Route: 048
  15. PIRFENIDONE [Suspect]
     Active Substance: PIRFENIDONE
     Dosage: 267 MG, TID
     Route: 048
  16. PIRFENIDONE [Suspect]
     Active Substance: PIRFENIDONE
     Dosage: 267 MG, TID
     Route: 048
  17. PIRFENIDONE [Suspect]
     Active Substance: PIRFENIDONE
     Dosage: 801 MG, TID
     Route: 048
  18. PIRFENIDONE [Suspect]
     Active Substance: PIRFENIDONE
     Dosage: 801 MG, TID
     Route: 048
  19. PIRFENIDONE [Suspect]
     Active Substance: PIRFENIDONE
     Dosage: 801 MG, TID
     Route: 048
  20. PIRFENIDONE [Suspect]
     Active Substance: PIRFENIDONE
     Dosage: 534 MG, TID
     Route: 048
  21. PIRFENIDONE [Suspect]
     Active Substance: PIRFENIDONE
     Dosage: 534 MG, TID
     Route: 048
  22. PIRFENIDONE [Suspect]
     Active Substance: PIRFENIDONE
     Dosage: UNK
     Route: 048
  23. PIRFENIDONE [Suspect]
     Active Substance: PIRFENIDONE
     Dosage: 801 MG, TID
     Route: 048
  24. PIRFENIDONE [Suspect]
     Active Substance: PIRFENIDONE
     Dosage: UNK
     Route: 048
  25. PIRFENIDONE [Suspect]
     Active Substance: PIRFENIDONE
     Dosage: 267 MG, TID
     Route: 048
  26. PIRFENIDONE [Suspect]
     Active Substance: PIRFENIDONE
     Dosage: 267 MG, TID
     Route: 048
  27. PROPAFENONE [Suspect]
     Active Substance: PROPAFENONE
     Indication: Product used for unknown indication
     Dosage: UNK
     Route: 065
  28. PROPAFENONE [Suspect]
     Active Substance: PROPAFENONE
     Dosage: UNK
     Route: 065
  29. WARFARIN [Suspect]
     Active Substance: WARFARIN
     Indication: Product used for unknown indication
     Dosage: UNK
     Route: 065
  30. WARFARIN [Suspect]
     Active Substance: WARFARIN
     Dosage: UNK
     Route: 065
  31. DICLOFENAC [Suspect]
     Active Substance: DICLOFENAC
     Indication: Product used for unknown indication
     Dosage: UNK
     Route: 065
  32. TYLENOL WITH CODEINE [Suspect]
     Active Substance: ACETAMINOPHEN\CODEINE PHOSPHATE
     Indication: Intervertebral disc disorder
     Dosage: UNK
     Route: 065
  33. TYLENOL WITH CODEINE [Suspect]
     Active Substance: ACETAMINOPHEN\CODEINE PHOSPHATE
     Dosage: UNK
     Route: 065
  34. LORAZEPAM [Suspect]
     Active Substance: LORAZEPAM
     Indication: Back pain
     Dosage: UNK
     Route: 065
  35. ESBRIET [Suspect]
     Active Substance: PIRFENIDONE
     Indication: Idiopathic pulmonary fibrosis
     Dosage: 267 MG, TID
     Route: 048
  36. ESBRIET [Suspect]
     Active Substance: PIRFENIDONE
     Dosage: 534 MG, TID
     Route: 048
  37. ESBRIET [Suspect]
     Active Substance: PIRFENIDONE
     Dosage: 801 MG, TID
     Route: 048
  38. ESBRIET [Suspect]
     Active Substance: PIRFENIDONE
     Dosage: 801 MG, TID
     Route: 048
  39. ESBRIET [Suspect]
     Active Substance: PIRFENIDONE
     Dosage: 801 MG, TID
     Route: 048
  40. ESBRIET [Suspect]
     Active Substance: PIRFENIDONE
     Dosage: 534 MG, TID
     Route: 048
  41. ESBRIET [Suspect]
     Active Substance: PIRFENIDONE
     Dosage: 534 MG, TID
     Route: 048
  42. ESBRIET [Suspect]
     Active Substance: PIRFENIDONE
     Dosage: UNK
     Route: 048
  43. ESBRIET [Suspect]
     Active Substance: PIRFENIDONE
     Dosage: 801 MG, TID
     Route: 048
  44. ESBRIET [Suspect]
     Active Substance: PIRFENIDONE
     Dosage: UNK
     Route: 048
  45. ESBRIET [Suspect]
     Active Substance: PIRFENIDONE
     Dosage: 267 MG, TID
     Route: 048
  46. ESBRIET [Suspect]
     Active Substance: PIRFENIDONE
     Dosage: 267 MG, TID
     Route: 048
  47. ESBRIET [Suspect]
     Active Substance: PIRFENIDONE
     Dosage: 801 MG, TID
     Route: 048
  48. ESBRIET [Suspect]
     Active Substance: PIRFENIDONE
     Dosage: 801 MG, TID
     Route: 048
  49. ESBRIET [Suspect]
     Active Substance: PIRFENIDONE
     Dosage: 801 MG, TID
     Route: 048
  50. ESBRIET [Suspect]
     Active Substance: PIRFENIDONE
     Dosage: 534 MG, TID
     Route: 048
  51. ESBRIET [Suspect]
     Active Substance: PIRFENIDONE
     Dosage: 534 MG, TID
     Route: 048
  52. ESBRIET [Suspect]
     Active Substance: PIRFENIDONE
     Dosage: UNK
     Route: 048
  53. ESBRIET [Suspect]
     Active Substance: PIRFENIDONE
     Dosage: 801 MG, TID
     Route: 048
  54. ESBRIET [Suspect]
     Active Substance: PIRFENIDONE
     Dosage: UNK
     Route: 048
  55. ESBRIET [Suspect]
     Active Substance: PIRFENIDONE
     Dosage: 267 MG, TID
     Route: 048
  56. ESBRIET [Suspect]
     Active Substance: PIRFENIDONE
     Dosage: 267 MG, TID
     Route: 048
  57. ESBRIET [Suspect]
     Active Substance: PIRFENIDONE
     Dosage: 267 MILLIGRAM, 3 EVERY 1 DAYS
     Route: 048
  58. ESBRIET [Suspect]
     Active Substance: PIRFENIDONE
     Dosage: 534 MILLIGRAM, 3 EVERY 1 DAYS
     Route: 048
  59. ESBRIET [Suspect]
     Active Substance: PIRFENIDONE
     Dosage: 1869 MILLIGRAM
     Route: 048
  60. ESBRIET [Suspect]
     Active Substance: PIRFENIDONE
     Dosage: 267 MILLIGRAM, 3 EVERY 1 DAYS
     Route: 048
  61. ESBRIET [Suspect]
     Active Substance: PIRFENIDONE
     Dosage: 267 MILLIGRAM, TID
     Route: 048
  62. ESBRIET [Suspect]
     Active Substance: PIRFENIDONE
     Dosage: 1068 MILLIGRAM
     Route: 048
  63. ESBRIET [Suspect]
     Active Substance: PIRFENIDONE
     Dosage: 801 MILLIGRAM, 3 EVERY 1 DAYS
     Route: 048
  64. ESBRIET [Suspect]
     Active Substance: PIRFENIDONE
     Dosage: 267 MILLIGRAM, 3 EVERY 1 DAYS
     Route: 048
  65. ESBRIET [Suspect]
     Active Substance: PIRFENIDONE
     Dosage: UNK, 3 EVERY 1 DAYS
     Route: 048
  66. ESBRIET [Suspect]
     Active Substance: PIRFENIDONE
     Dosage: UNK, 3 EVERY 1 DAYS
     Route: 048
  67. ATIVAN [Concomitant]
     Active Substance: LORAZEPAM
     Indication: Product used for unknown indication
     Dosage: UNK
     Route: 065
  68. ATIVAN [Concomitant]
     Active Substance: LORAZEPAM
     Route: 065
  69. BISOPROLOL [Concomitant]
     Active Substance: BISOPROLOL
     Indication: Product used for unknown indication
     Dosage: UNK
     Route: 065
  70. DICLOFENAC [Concomitant]
     Active Substance: DICLOFENAC
     Indication: Product used for unknown indication
     Dosage: UNK
     Route: 065
  71. APIXABAN [Concomitant]
     Active Substance: APIXABAN
     Indication: Product used for unknown indication
     Dosage: UNK
     Route: 065
  72. LASIX [Concomitant]
     Active Substance: FUROSEMIDE
     Indication: Product used for unknown indication
     Dosage: UNK
     Route: 065
  73. OXYGEN [Concomitant]
     Active Substance: OXYGEN
     Indication: Product used for unknown indication
     Dosage: UNK
     Route: 065
  74. OXYGEN [Concomitant]
     Active Substance: OXYGEN
     Dosage: UNK
     Route: 065
  75. ROSUVASTATIN [Concomitant]
     Active Substance: ROSUVASTATIN
     Indication: Product used for unknown indication
     Dosage: UNK
     Route: 065
  76. ROSUVASTATIN [Concomitant]
     Active Substance: ROSUVASTATIN
     Dosage: UNK
     Route: 058
  77. TYLENOL                            /00020001/ [Concomitant]
     Indication: Product used for unknown indication
     Dosage: UNK
     Route: 065
  78. ACETAMINOPHEN\CODEINE PHOSPHATE [Concomitant]
     Active Substance: ACETAMINOPHEN\CODEINE PHOSPHATE
     Indication: Product used for unknown indication
     Dosage: UNK
     Route: 065
  79. MELATONIN [Concomitant]
     Active Substance: MELATONIN
     Indication: Product used for unknown indication
     Dosage: UNK
     Route: 065
  80. METRONIDAZOLE [Concomitant]
     Active Substance: METRONIDAZOLE
     Indication: Product used for unknown indication
     Dosage: UNK
     Route: 065
  81. ELIQUIS [Concomitant]
     Active Substance: APIXABAN
     Indication: Product used for unknown indication
  82. LASIX [Concomitant]
     Active Substance: FUROSEMIDE
     Indication: Product used for unknown indication
     Route: 065
  83. TYLENOL [Concomitant]
     Active Substance: ACETAMINOPHEN
     Indication: Product used for unknown indication
     Dosage: UNK
     Route: 065
  84. TYLENOL WITH CODEINE [Concomitant]
     Active Substance: ACETAMINOPHEN\CODEINE PHOSPHATE
     Indication: Product used for unknown indication
     Dosage: UNK
     Route: 065
  85. VOLTAREN [Concomitant]
     Active Substance: DICLOFENAC SODIUM
     Indication: Product used for unknown indication
     Dosage: UNK
     Route: 065

REACTIONS (45)
  - Chest pain [Not Recovered/Not Resolved]
  - Drug interaction [Not Recovered/Not Resolved]
  - Eructation [Not Recovered/Not Resolved]
  - Eye haemorrhage [Not Recovered/Not Resolved]
  - Eye pain [Not Recovered/Not Resolved]
  - Heart rate increased [Not Recovered/Not Resolved]
  - International normalised ratio decreased [Not Recovered/Not Resolved]
  - Intervertebral disc disorder [Not Recovered/Not Resolved]
  - Lower respiratory tract infection [Not Recovered/Not Resolved]
  - Pneumonia [Not Recovered/Not Resolved]
  - Nasopharyngitis [Not Recovered/Not Resolved]
  - Retinal detachment [Not Recovered/Not Resolved]
  - Abdominal discomfort [Not Recovered/Not Resolved]
  - Abdominal distension [Not Recovered/Not Resolved]
  - Asthenia [Not Recovered/Not Resolved]
  - Decreased appetite [Not Recovered/Not Resolved]
  - Dyspnoea [Not Recovered/Not Resolved]
  - Fatigue [Not Recovered/Not Resolved]
  - Feeling abnormal [Not Recovered/Not Resolved]
  - Malaise [Not Recovered/Not Resolved]
  - Diarrhoea [Not Recovered/Not Resolved]
  - Dizziness [Not Recovered/Not Resolved]
  - Headache [Not Recovered/Not Resolved]
  - Arthralgia [Not Recovered/Not Resolved]
  - Atrial fibrillation [Not Recovered/Not Resolved]
  - Blood sodium decreased [Not Recovered/Not Resolved]
  - Cerebrovascular accident [Not Recovered/Not Resolved]
  - Constipation [Not Recovered/Not Resolved]
  - Erythema [Not Recovered/Not Resolved]
  - Gait disturbance [Not Recovered/Not Resolved]
  - Middle insomnia [Not Recovered/Not Resolved]
  - Movement disorder [Not Recovered/Not Resolved]
  - Muscle spasms [Not Recovered/Not Resolved]
  - Oropharyngeal pain [Not Recovered/Not Resolved]
  - Periorbital pain [Not Recovered/Not Resolved]
  - Product physical issue [Not Recovered/Not Resolved]
  - Productive cough [Not Recovered/Not Resolved]
  - Pruritus [Not Recovered/Not Resolved]
  - Rash [Not Recovered/Not Resolved]
  - Sacral pain [Not Recovered/Not Resolved]
  - Sleep disorder [Not Recovered/Not Resolved]
  - Thrombosis [Not Recovered/Not Resolved]
  - Treatment noncompliance [Not Recovered/Not Resolved]
  - Nausea [Not Recovered/Not Resolved]
  - Skin discolouration [Not Recovered/Not Resolved]
